FAERS Safety Report 17904068 (Version 1)
Quarter: 2020Q2

REPORT INFORMATION
  Report Type: Spontaneous
  Country: US (occurrence: US)
  Receive Date: 20200616
  Receipt Date: 20200616
  Transmission Date: 20200714
  Serious: Yes (Other)
  Sender: FDA-Public Use
  Company Number: US-BAUSCH-BL-2020-017050

PATIENT
  Sex: Male

DRUGS (1)
  1. LUMIFY [Suspect]
     Active Substance: BRIMONIDINE TARTRATE
     Indication: PRODUCT USED FOR UNKNOWN INDICATION
     Dosage: STARTED APPROXIMATELY 1 MONTH AGO, SINGLE, IN THE LEFT EYE
     Route: 047
     Dates: start: 202005, end: 202005

REACTIONS (1)
  - Vitreous detachment [Not Recovered/Not Resolved]

NARRATIVE: CASE EVENT DATE: 202005
